FAERS Safety Report 17807437 (Version 1)
Quarter: 2020Q2

REPORT INFORMATION
  Report Type: Spontaneous
  Country: US (occurrence: US)
  Receive Date: 20200519
  Receipt Date: 20200519
  Transmission Date: 20200714
  Serious: No
  Sender: FDA-Public Use
  Company Number: None

PATIENT
  Age: 78 Year
  Sex: Female

DRUGS (1)
  1. POMALYST [Suspect]
     Active Substance: POMALIDOMIDE
     Indication: PLASMA CELL MYELOMA
     Route: 048
     Dates: start: 20200325, end: 20200508

REACTIONS (4)
  - Dizziness [None]
  - Confusional state [None]
  - Blood pressure fluctuation [None]
  - Oedema peripheral [None]

NARRATIVE: CASE EVENT DATE: 20200504
